FAERS Safety Report 20593691 (Version 1)
Quarter: 2022Q1

REPORT INFORMATION
  Report Type: Spontaneous
  Country: US (occurrence: None)
  Receive Date: 20220315
  Receipt Date: 20220315
  Transmission Date: 20220423
  Serious: No
  Sender: FDA-Public Use
  Company Number: US-ROCHE-2907518

PATIENT
  Age: 34 Year
  Sex: Female
  Weight: 80.358 kg

DRUGS (6)
  1. XOLAIR [Suspect]
     Active Substance: OMALIZUMAB
     Indication: Chronic spontaneous urticaria
     Dosage: (2) 150 MG INJECTIONS EVERY 4 WEEKS
     Route: 058
     Dates: start: 201910
  2. LAMICTAL [Concomitant]
     Active Substance: LAMOTRIGINE
     Indication: Epilepsy
     Dosage: 200 MG IN MORNING
     Route: 048
     Dates: start: 2001
  3. LAMICTAL [Concomitant]
     Active Substance: LAMOTRIGINE
     Dosage: 225 MG IN THE EVENING
     Route: 048
     Dates: start: 2001
  4. KEPPRA [Concomitant]
     Active Substance: LEVETIRACETAM
     Indication: Epilepsy
     Route: 048
     Dates: start: 2001
  5. SYNTHROID [Concomitant]
     Active Substance: LEVOTHYROXINE SODIUM
     Indication: Hypothyroidism
     Route: 048
     Dates: start: 2011
  6. ALBUTEROL [Concomitant]
     Active Substance: ALBUTEROL
     Indication: Asthma
     Dosage: 2 PUFFS AS NEEDED FOR ASTHMA
     Route: 055
     Dates: start: 1998

REACTIONS (4)
  - Product complaint [Unknown]
  - Product administration error [Unknown]
  - Product dose omission issue [Unknown]
  - No adverse event [Unknown]

NARRATIVE: CASE EVENT DATE: 20210903
